FAERS Safety Report 9917375 (Version 2)
Quarter: 2014Q2

REPORT INFORMATION
  Report Type: Spontaneous
  Country: US (occurrence: US)
  Receive Date: 20140221
  Receipt Date: 20140403
  Transmission Date: 20141212
  Serious: Yes (Other)
  Sender: FDA-Public Use
  Company Number: US-PFIZER INC-2014048912

PATIENT
  Age: 76 Year
  Sex: Female
  Weight: 78.5 kg

DRUGS (4)
  1. PREMARIN [Suspect]
     Indication: OSTEOPOROSIS PROPHYLAXIS
     Dosage: UNK
     Dates: start: 1990
  2. PREMARIN [Suspect]
     Dosage: 0.625 MG, 4X/WEEK
     Dates: end: 201302
  3. PREMARIN [Suspect]
     Dosage: 0.625 MG, 4X/WEEK
     Dates: start: 201307, end: 201402
  4. SYNTHROID [Concomitant]
     Indication: THYROID DISORDER
     Dosage: 1.75 UG, 1X/DAY

REACTIONS (1)
  - Breast cancer female [Unknown]
